FAERS Safety Report 10031306 (Version 6)
Quarter: 2024Q3

REPORT INFORMATION
  Report Type: Spontaneous
  Country: JP (occurrence: JP)
  Receive Date: 20140324
  Receipt Date: 20240802
  Transmission Date: 20241017
  Serious: Yes (Hospitalization, Other)
  Sender: MERCK
  Company Number: JP-009507513-1403JPN009896

PATIENT
  Age: 58 Year
  Sex: Female
  Weight: 53 kg

DRUGS (32)
  1. EMEND [Interacting]
     Active Substance: APREPITANT
     Indication: Prophylaxis of nausea and vomiting
     Dosage: 125 MG, QD
     Route: 048
     Dates: start: 20130312, end: 20130312
  2. EMEND [Interacting]
     Active Substance: APREPITANT
     Dosage: 80 MG, QD
     Route: 048
     Dates: start: 20130313, end: 20130314
  3. EMEND [Interacting]
     Active Substance: APREPITANT
     Dosage: 125 MG, QD
     Route: 048
     Dates: start: 20130402, end: 20130402
  4. EMEND [Interacting]
     Active Substance: APREPITANT
     Dosage: 80 MG, QD
     Route: 048
     Dates: start: 20130403, end: 20130404
  5. EMEND [Interacting]
     Active Substance: APREPITANT
     Dosage: 125 MG, QD
     Route: 048
     Dates: start: 20130424, end: 20130424
  6. EMEND [Interacting]
     Active Substance: APREPITANT
     Dosage: 80 MG, QD
     Route: 048
     Dates: start: 20130425, end: 20130426
  7. EMEND [Interacting]
     Active Substance: APREPITANT
     Dosage: 125 MG, QD
     Route: 048
     Dates: start: 20130520, end: 20130520
  8. EMEND [Interacting]
     Active Substance: APREPITANT
     Dosage: 80 MG, QD
     Route: 048
     Dates: start: 20130521, end: 20130522
  9. EMEND [Interacting]
     Active Substance: APREPITANT
     Dosage: 125 MG, QD
     Route: 048
     Dates: start: 20130617, end: 20130617
  10. EMEND [Interacting]
     Active Substance: APREPITANT
     Dosage: 80 MG, QD
     Route: 048
     Dates: start: 20130618, end: 20130619
  11. WARFARIN POTASSIUM [Interacting]
     Active Substance: WARFARIN POTASSIUM
     Indication: Deep vein thrombosis
     Dosage: 2 MG, QD
     Route: 048
     Dates: start: 20130206, end: 201302
  12. WARFARIN POTASSIUM [Interacting]
     Active Substance: WARFARIN POTASSIUM
     Dosage: 4 MG, QD
     Route: 048
     Dates: start: 201302, end: 20130401
  13. WARFARIN POTASSIUM [Interacting]
     Active Substance: WARFARIN POTASSIUM
     Dosage: 5 MG, QD
     Route: 048
     Dates: start: 20130402, end: 20130513
  14. WARFARIN POTASSIUM [Interacting]
     Active Substance: WARFARIN POTASSIUM
     Dosage: 7 MG, QD
     Route: 048
     Dates: start: 20130514, end: 20130804
  15. WARFARIN POTASSIUM [Interacting]
     Active Substance: WARFARIN POTASSIUM
     Dosage: 1 MG, QD
     Route: 048
     Dates: start: 20130807
  16. PACLITAXEL [Concomitant]
     Active Substance: PACLITAXEL
     Dosage: UNK
  17. PACLITAXEL [Concomitant]
     Active Substance: PACLITAXEL
     Dosage: UNK
  18. PACLITAXEL [Concomitant]
     Active Substance: PACLITAXEL
     Dosage: UNK
  19. PACLITAXEL [Concomitant]
     Active Substance: PACLITAXEL
     Dosage: UNK
  20. PACLITAXEL [Concomitant]
     Active Substance: PACLITAXEL
     Dosage: UNK
  21. PACLITAXEL [Concomitant]
     Active Substance: PACLITAXEL
     Dosage: UNK
  22. PACLITAXEL [Concomitant]
     Active Substance: PACLITAXEL
     Dosage: UNK
  23. CARBOPLATIN [Concomitant]
     Active Substance: CARBOPLATIN
     Dosage: UNK
  24. CARBOPLATIN [Concomitant]
     Active Substance: CARBOPLATIN
     Dosage: UNK
  25. CARBOPLATIN [Concomitant]
     Active Substance: CARBOPLATIN
     Dosage: UNK
  26. CARBOPLATIN [Concomitant]
     Active Substance: CARBOPLATIN
     Dosage: UNK
  27. CARBOPLATIN [Concomitant]
     Active Substance: CARBOPLATIN
     Dosage: UNK
  28. CARBOPLATIN [Concomitant]
     Active Substance: CARBOPLATIN
     Dosage: UNK
  29. RILMAZAFONE HYDROCHLORIDE [Concomitant]
     Active Substance: RILMAZAFONE HYDROCHLORIDE
     Dosage: UNK
  30. LOXOPROFEN SODIUM [Concomitant]
     Active Substance: LOXOPROFEN SODIUM
     Dosage: UNK
  31. OXYCONTIN [Concomitant]
     Active Substance: OXYCODONE HYDROCHLORIDE
     Dosage: UNK
     Dates: start: 20130806
  32. PROCHLORPERAZINE MALEATE [Concomitant]
     Active Substance: PROCHLORPERAZINE MALEATE
     Dosage: UNK
     Dates: start: 20130806

REACTIONS (4)
  - Intra-abdominal haemorrhage [Unknown]
  - Pulmonary embolism [Unknown]
  - Prothrombin time ratio decreased [Unknown]
  - Drug interaction [Unknown]

NARRATIVE: CASE EVENT DATE: 20130101
